FAERS Safety Report 15672203 (Version 1)
Quarter: 2018Q4

REPORT INFORMATION
  Report Type: Spontaneous
  Country: DE (occurrence: DE)
  Receive Date: 20181129
  Receipt Date: 20181129
  Transmission Date: 20190205
  Serious: No
  Sender: FDA-Public Use
  Company Number: DE-TESARO-DE-2018TSO04283

PATIENT
  Sex: Female

DRUGS (1)
  1. ZEJULA [Suspect]
     Active Substance: NIRAPARIB
     Indication: OVARIAN CANCER
     Dosage: 200 MG, QD
     Dates: start: 20180423

REACTIONS (4)
  - Intentional underdose [Unknown]
  - Insomnia [Unknown]
  - Alopecia [Unknown]
  - Palpitations [Unknown]

NARRATIVE: CASE EVENT DATE: 201806
